FAERS Safety Report 4554665-4 (Version None)
Quarter: 2005Q1

REPORT INFORMATION
  Report Type: 
  Country: None (occurrence: None)
  Receive Date: 20050114
  Receipt Date: 20050104
  Transmission Date: 20050727
  Serious: Yes (Death)
  Sender: FDA-Public Use
  Company Number: A-CH2005-08495

PATIENT
  Age: 50 Year
  Sex: Male

DRUGS (8)
  1. TRACLEER [Suspect]
     Indication: PULMONARY HYPERTENSION
  2. RAMIPRIL [Concomitant]
  3. TOREM (TORASEMIDE) [Concomitant]
  4. POLAMIDON (METHADONE HYDROCHLORIDE) [Concomitant]
  5. COTRIM [Concomitant]
  6. BERODUAL (FENOTEROL HYDROBROMIDE, IPRATROPIUM BROMIDE) [Concomitant]
  7. SYMBICORT [Concomitant]
  8. SPIRIVA [Concomitant]

REACTIONS (5)
  - ALANINE AMINOTRANSFERASE INCREASED [None]
  - ASPARTATE AMINOTRANSFERASE INCREASED [None]
  - BLOOD BILIRUBIN INCREASED [None]
  - CARDIOPULMONARY FAILURE [None]
  - OFF LABEL USE [None]
